FAERS Safety Report 12445753 (Version 5)
Quarter: 2022Q4

REPORT INFORMATION
  Report Type: Spontaneous
  Country: US (occurrence: US)
  Receive Date: 20160608
  Receipt Date: 20221027
  Transmission Date: 20230112
  Serious: No
  Sender: FDA-Public Use
  Company Number: US-JNJFOC-20160411835

PATIENT
  Sex: Male

DRUGS (12)
  1. RISPERDAL [Suspect]
     Active Substance: RISPERIDONE
     Indication: Attention deficit hyperactivity disorder
     Route: 048
     Dates: start: 20061123, end: 20070726
  2. RISPERDAL [Suspect]
     Active Substance: RISPERIDONE
     Indication: Bipolar disorder
     Route: 048
     Dates: start: 20061123, end: 20111222
  3. RISPERDAL [Suspect]
     Active Substance: RISPERIDONE
     Indication: Depression
     Route: 048
     Dates: start: 20070813, end: 20080714
  4. RISPERDAL [Suspect]
     Active Substance: RISPERIDONE
     Route: 048
     Dates: start: 20120624, end: 20130815
  5. RISPERDAL [Suspect]
     Active Substance: RISPERIDONE
     Route: 048
     Dates: start: 20140311, end: 20140509
  6. RISPERDAL [Suspect]
     Active Substance: RISPERIDONE
     Route: 048
     Dates: start: 20140809, end: 20141202
  7. RISPERDAL [Suspect]
     Active Substance: RISPERIDONE
     Route: 048
     Dates: start: 20150310
  8. RISPERIDONE [Suspect]
     Active Substance: RISPERIDONE
     Indication: Attention deficit hyperactivity disorder
     Dosage: VARYING DOSES 1 MG AND 3 MG
     Route: 048
     Dates: start: 20080808, end: 20150310
  9. RISPERIDONE [Suspect]
     Active Substance: RISPERIDONE
     Indication: Bipolar disorder
     Route: 048
     Dates: start: 20091117, end: 20130427
  10. RISPERIDONE [Suspect]
     Active Substance: RISPERIDONE
     Indication: Depression
  11. RISPERIDONE [Suspect]
     Active Substance: RISPERIDONE
     Indication: Product used for unknown indication
     Route: 048
     Dates: start: 20080808, end: 20110318
  12. RISPERIDONE [Suspect]
     Active Substance: RISPERIDONE
     Route: 048
     Dates: start: 20110523, end: 20150410

REACTIONS (2)
  - Emotional distress [Unknown]
  - Gynaecomastia [Unknown]
